FAERS Safety Report 17741201 (Version 1)
Quarter: 2020Q2

REPORT INFORMATION
  Report Type: Report from Study
  Country: ZA (occurrence: ZA)
  Receive Date: 20200504
  Receipt Date: 20200504
  Transmission Date: 20200714
  Serious: Yes (Hospitalization)
  Sender: FDA-Public Use
  Company Number: NVSC2020ZA113973

PATIENT
  Sex: Male

DRUGS (8)
  1. CAPTOPRIL. [Suspect]
     Active Substance: CAPTOPRIL
     Indication: CARDIAC FAILURE
     Dosage: UNK
     Route: 048
  2. ASPAVOR [Concomitant]
     Active Substance: ATORVASTATIN
     Indication: DYSLIPIDAEMIA
     Route: 065
  3. LANOXIN [Concomitant]
     Active Substance: DIGOXIN
     Indication: CARDIAC FAILURE CONGESTIVE
     Route: 065
  4. CAPTOPRIL. [Concomitant]
     Active Substance: CAPTOPRIL
     Indication: CARDIAC FAILURE CONGESTIVE
     Route: 065
  5. HUMALOG [Concomitant]
     Active Substance: INSULIN LISPRO
     Indication: DYSLIPIDAEMIA
     Route: 065
  6. ECOTRIN [Concomitant]
     Active Substance: ASPIRIN
     Indication: CARDIAC FAILURE CONGESTIVE
     Route: 065
  7. CARVETREND [Concomitant]
     Active Substance: CARVEDILOL
     Indication: CARDIAC FAILURE CONGESTIVE
     Dosage: 12.5 MG, BID
     Route: 065
  8. FUROSEMIDE. [Concomitant]
     Active Substance: FUROSEMIDE
     Indication: CARDIAC FAILURE CONGESTIVE
     Dosage: HIGH DOSES
     Route: 065

REACTIONS (3)
  - Oedema peripheral [Unknown]
  - Left ventricular dysfunction [Unknown]
  - Dyspnoea [Unknown]
